FAERS Safety Report 8757580 (Version 3)
Quarter: 2012Q4

REPORT INFORMATION
  Report Type: 
  Country: US (occurrence: US)
  Receive Date: 20120828
  Receipt Date: 20121106
  Transmission Date: 20130627
  Serious: Yes (Other)
  Sender: FDA-Public Use
  Company Number: US-AMGEN-USASP2012052946

PATIENT
  Sex: Male

DRUGS (3)
  1. NPLATE [Suspect]
     Indication: IDIOPATHIC THROMBOCYTOPENIC PURPURA
     Dosage: 9 mug/kg, UNK
  2. NPLATE [Suspect]
     Dosage: 1 mug/kg, UNK
  3. IMMUNOGLOBULIN                     /00025201/ [Concomitant]
     Indication: POLYMYOSITIS
     Dosage: UNK

REACTIONS (8)
  - Platelet count decreased [Unknown]
  - No therapeutic response [Unknown]
  - Contusion [Recovered/Resolved]
  - Musculoskeletal pain [Not Recovered/Not Resolved]
  - Drug ineffective [Unknown]
  - Pain in extremity [Not Recovered/Not Resolved]
  - Headache [Recovering/Resolving]
  - Arthralgia [Unknown]
